FAERS Safety Report 17615590 (Version 1)
Quarter: 2020Q1

REPORT INFORMATION
  Report Type: Spontaneous
  Country: US (occurrence: US)
  Receive Date: 20200331
  Receipt Date: 20200331
  Transmission Date: 20200409
  Serious: Yes (Hospitalization)
  Sender: FDA-Public Use
  Company Number: None

PATIENT
  Age: 46 Year
  Sex: Male

DRUGS (2)
  1. HYDROCORTISONE (HYDROCORTISONE 5MG TAB) [Suspect]
     Active Substance: HYDROCORTISONE
     Indication: HYPOPITUITARISM
     Dosage: ?          OTHER FREQUENCY:AM;?
     Dates: start: 20200111
  2. MIRTAZAPINE (MIRTAZAPINE 30MG TAB) [Suspect]
     Active Substance: MIRTAZAPINE
     Indication: SCHIZOPHRENIA
     Dosage: ?          OTHER FREQUENCY:BEDTIME ;?
     Route: 048
     Dates: start: 20051109

REACTIONS (6)
  - Nausea [None]
  - Diarrhoea [None]
  - Hypovolaemia [None]
  - Adrenal insufficiency [None]
  - Hyponatraemia [None]
  - Vomiting [None]

NARRATIVE: CASE EVENT DATE: 20200312
